FAERS Safety Report 4555818-1 (Version None)
Quarter: 2005Q1

REPORT INFORMATION
  Report Type: 
  Country: None (occurrence: None)
  Receive Date: 20050111
  Receipt Date: 20490219
  Transmission Date: 20050727
  Serious: Yes (Hospitalization)
  Sender: FDA-Public Use
  Company Number: 914#2#2004-00006

PATIENT
  Age: 81 Year
  Sex: Male
  Weight: 70.7611 kg

DRUGS (4)
  1. VERELAN PM [Suspect]
     Indication: HYPERTENSION
     Dosage: 200MG, 1 IN 1 DAY, ORAL
     Route: 048
     Dates: start: 20031101, end: 20031112
  2. LISINOPRIL [Concomitant]
  3. METOPROLOL SUCCINATE [Concomitant]
  4. SILYBUM MARIANUM (SILYBUM MARIANUM) [Concomitant]

REACTIONS (2)
  - HYPOTENSION [None]
  - SYNCOPE [None]
